FAERS Safety Report 12987475 (Version 3)
Quarter: 2017Q4

REPORT INFORMATION
  Report Type: Report from Study
  Country: US (occurrence: US)
  Receive Date: 20161130
  Receipt Date: 20171115
  Transmission Date: 20180320
  Serious: Yes (Other)
  Sender: FDA-Public Use
  Company Number: US-ROCHE-1861959

PATIENT
  Age: 68 Year
  Sex: Female
  Weight: 61.4 kg

DRUGS (2)
  1. VELIPARIB [Suspect]
     Active Substance: VELIPARIB
     Indication: MALIGNANT PERITONEAL NEOPLASM
     Dosage: 50 MG GIVEN TWICE PER DAY, FOR A TOTAL OF 4200 MG DURING EACH 21-DAY CYCLE?START DATE OF MOST RECENT
     Route: 048
     Dates: start: 20151118
  2. BEVACIZUMAB. [Suspect]
     Active Substance: BEVACIZUMAB
     Indication: MALIGNANT PERITONEAL NEOPLASM
     Dosage: MOST RECENT DOSE (859 MG) PRIOR TO SECOND EPISODE OF NEUTROPHIL COUNT DECREASED ADMINISTERED ON 09/D
     Route: 042
     Dates: start: 20151209

REACTIONS (4)
  - Hypertension [Unknown]
  - Neutrophil count decreased [Unknown]
  - Hyponatraemia [Unknown]
  - Platelet count decreased [Unknown]
